FAERS Safety Report 7652406-5 (Version None)
Quarter: 2011Q3

REPORT INFORMATION
  Report Type: 
  Country: None (occurrence: None)
  Receive Date: 20110722
  Receipt Date: 20101223
  Transmission Date: 20111222
  Serious: Yes (Death, Hospitalization)
  Sender: FDA-Public Use
  Company Number: UTC-003699

PATIENT
  Sex: Female
  Weight: 75 kg

DRUGS (2)
  1. LETAIRES(AMBRISENTAN) [Concomitant]
  2. REMODULIN [Suspect]
     Indication: PULMONARY ARTERIAL HYPERTENSION
     Dosage: 159.84 UG/KG (0.111 UG/KG, 1 IN 1 MIN), INTRAVENOUS
     Route: 042
     Dates: start: 20090306

REACTIONS (1)
  - INFECTION [None]
